FAERS Safety Report 10414396 (Version 3)
Quarter: 2015Q3

REPORT INFORMATION
  Report Type: Spontaneous
  Country: CA (occurrence: CA)
  Receive Date: 20140828
  Receipt Date: 20150921
  Transmission Date: 20151125
  Serious: Yes (Hospitalization, Other)
  Sender: FDA-Public Use
  Company Number: CA-ROCHE-1454741

PATIENT
  Age: 79 Year
  Sex: Female

DRUGS (5)
  1. XOLAIR [Suspect]
     Active Substance: OMALIZUMAB
     Indication: CHRONIC SPONTANEOUS URTICARIA
     Route: 058
     Dates: start: 20131212, end: 20150402
  2. TOVIAZ [Concomitant]
     Active Substance: FESOTERODINE FUMARATE
  3. PANTOLOC [Concomitant]
     Active Substance: PANTOPRAZOLE SODIUM
  4. CORTISONE [Concomitant]
     Active Substance: CORTISONE\HYDROCORTISONE
     Route: 042
  5. CETIRIZINE [Concomitant]
     Active Substance: CETIRIZINE HYDROCHLORIDE

REACTIONS (5)
  - Hypersensitivity [Recovering/Resolving]
  - Somnolence [Recovering/Resolving]
  - Angioedema [Recovering/Resolving]
  - Swollen tongue [Recovering/Resolving]
  - Facet joint syndrome [Recovering/Resolving]

NARRATIVE: CASE EVENT DATE: 20131213
